FAERS Safety Report 7394021-7 (Version None)
Quarter: 2011Q2

REPORT INFORMATION
  Report Type: 
  Country: None (occurrence: None)
  Receive Date: 20110405
  Receipt Date: 20100824
  Transmission Date: 20111010
  Serious: No
  Sender: FDA-Public Use
  Company Number: US-AMGEN-KDL433517

PATIENT
  Sex: Female

DRUGS (5)
  1. CYCLOPHOSPHAMIDE [Concomitant]
     Dosage: UNK UNK, UNK
     Route: 048
  2. DOXORUBICIN HCL [Concomitant]
  3. NEULASTA [Suspect]
     Indication: CHEMOTHERAPY
     Dosage: UNK UNK, UNK
  4. NEUPOGEN [Suspect]
     Indication: CHEMOTHERAPY
     Dosage: 480 A?G, UNK
  5. FLUOROURACIL [Concomitant]
     Dosage: UNK UNK, UNK

REACTIONS (4)
  - BACK PAIN [None]
  - STRESS [None]
  - DIZZINESS [None]
  - MALAISE [None]
